FAERS Safety Report 6523377-X (Version None)
Quarter: 2009Q4

REPORT INFORMATION
  Report Type: 
  Country: None (occurrence: None)
  Receive Date: 20091231
  Receipt Date: 20091222
  Transmission Date: 20100525
  Serious: Yes (Hospitalization)
  Sender: FDA-Public Use
  Company Number: FR-ROCHE-676172

PATIENT
  Sex: Female

DRUGS (6)
  1. PEGASYS [Suspect]
     Route: 058
     Dates: start: 20080523, end: 20081101
  2. PEGASYS [Suspect]
     Route: 058
     Dates: start: 20081118, end: 20090724
  3. COPEGUS [Suspect]
     Route: 065
     Dates: start: 20080523, end: 20081101
  4. COPEGUS [Suspect]
     Route: 065
     Dates: start: 20081118, end: 20090724
  5. TRUVADA [Concomitant]
  6. ISENTRESS [Concomitant]

REACTIONS (3)
  - CEREBRAL TOXOPLASMOSIS [None]
  - LYMPHOPENIA [None]
  - NEUTROPENIA [None]
